FAERS Safety Report 5474398-X (Version None)
Quarter: 2007Q3

REPORT INFORMATION
  Report Type: 
  Country: None (occurrence: None)
  Receive Date: 20070831
  Receipt Date: 20070416
  Transmission Date: 20080115
  Serious: No
  Sender: FDA-Public Use
  Company Number: 240016

PATIENT
  Age: 80 Year
  Sex: Female

DRUGS (5)
  1. LUCENTIS [Suspect]
     Indication: DRUG USE FOR UNKNOWN INDICATION
     Dates: start: 20061101
  2. LUTEIN [Concomitant]
  3. EYE VITAMIN(VITAMINS NOS) [Concomitant]
  4. BLOOD PRESSURE MEDICATION NOS(ANTIHYPERTENSIVE NOS) [Concomitant]
  5. MEDICATION(UNK INGREDIENT) (GENERIC COMPONENT(S) NOT KNOWN) [Concomitant]

REACTIONS (1)
  - OCULAR HYPERAEMIA [None]
